FAERS Safety Report 8598448-7 (Version None)
Quarter: 2012Q3

REPORT INFORMATION
  Report Type: 
  Country: None (occurrence: None)
  Receive Date: 20120816
  Receipt Date: 20120808
  Transmission Date: 20120928
  Serious: Yes (Other)
  Sender: FDA-Public Use
  Company Number: DE-ROCHE-1009092

PATIENT
  Sex: Female
  Weight: 59 kg

DRUGS (14)
  1. GABAPENTIN [Concomitant]
     Dates: start: 20111012
  2. PAMIDRONATE DISODIUM [Concomitant]
     Dates: start: 20110901
  3. AVASTIN [Suspect]
     Indication: BREAST CANCER METASTATIC
     Dosage: LAST DOSE PRIOR TO SAE 05/OCT/2011
     Route: 042
     Dates: start: 20110623, end: 20111005
  4. EFFORTIL PLUS [Concomitant]
     Dates: start: 20111019
  5. OMEPRAZOLE [Concomitant]
     Dates: start: 20111004
  6. MAALOXAN [Concomitant]
     Dates: start: 20110707
  7. PAMIDRONATE DISODIUM [Concomitant]
     Dates: start: 20110901
  8. LASIX [Concomitant]
     Dates: start: 20111004
  9. IBUPROFEN [Concomitant]
     Dates: start: 20110617
  10. XYLOCAINE [Concomitant]
     Dates: start: 20110707
  11. PACLITAXEL [Suspect]
     Dates: start: 20110717, end: 20111019
  12. DEXPANTHENOL [Concomitant]
     Dates: start: 20110707
  13. RAMICLAIR [Concomitant]
     Dates: start: 20110617
  14. PACLITAXEL [Suspect]
     Indication: BREAST CANCER METASTATIC
     Dosage: DATE OF LAST DOSE: 19/OCT/2011
     Route: 042
     Dates: start: 20110623, end: 20110711

REACTIONS (2)
  - NAIL DISORDER [None]
  - PALMAR-PLANTAR ERYTHRODYSAESTHESIA SYNDROME [None]
